FAERS Safety Report 20631810 (Version 1)
Quarter: 2022Q1

REPORT INFORMATION
  Report Type: Report from Study
  Country: US (occurrence: None)
  Receive Date: 20220324
  Receipt Date: 20220324
  Transmission Date: 20220423
  Serious: No
  Sender: FDA-Public Use
  Company Number: 2022A115632

PATIENT
  Age: 70 Year
  Sex: Female
  Weight: 100.7 kg

DRUGS (1)
  1. EVUSHELD [Suspect]
     Active Substance: CILGAVIMAB\TIXAGEVIMAB
     Indication: Immune system disorder
     Dosage: ONCE/SINGLE ADMINISTRATION
     Route: 030
     Dates: start: 20220207

REACTIONS (1)
  - Product use issue [Unknown]

NARRATIVE: CASE EVENT DATE: 20220207
